FAERS Safety Report 6161557-6 (Version None)
Quarter: 2009Q2

REPORT INFORMATION
  Report Type: 
  Country: None (occurrence: None)
  Receive Date: 20090417
  Receipt Date: 20090417
  Transmission Date: 20091009
  Serious: Yes (Hospitalization)
  Sender: FDA-Public Use
  Company Number: None

PATIENT
  Sex: Male
  Weight: 74.8435 kg

DRUGS (1)
  1. DIGOXIN [Suspect]
     Indication: CARDIAC DISORDER
     Dosage: 0.125 MG 1XDAY PO
     Route: 048
     Dates: start: 20090315, end: 20090415

REACTIONS (6)
  - ASTHENIA [None]
  - CONSTIPATION [None]
  - DIZZINESS [None]
  - NAUSEA [None]
  - PRODUCT QUALITY ISSUE [None]
  - VOMITING [None]
